FAERS Safety Report 8550076-5 (Version None)
Quarter: 2012Q3

REPORT INFORMATION
  Report Type: 
  Country: None (occurrence: None)
  Receive Date: 20120730
  Receipt Date: 20120716
  Transmission Date: 20120928
  Serious: Yes (Hospitalization)
  Sender: FDA-Public Use
  Company Number: US-ROCHE-1088659

PATIENT
  Sex: Male

DRUGS (14)
  1. METOPROLOL TARTRATE [Concomitant]
  2. RAMIPRIL [Concomitant]
  3. LASIX [Concomitant]
  4. ADVAIR DISKUS 100/50 [Concomitant]
  5. ASPIRIN [Concomitant]
  6. FOLIC ACID [Concomitant]
  7. VITAMIN B12A [Concomitant]
  8. POTASSIUM CHLORIDE [Concomitant]
  9. ALBUTEROL SULFATE AND IPRATROPIUM BROMIDE [Concomitant]
  10. SOLIRIS [Suspect]
     Route: 042
     Dates: start: 20110101
  11. COMBIVENT [Concomitant]
  12. AVASTIN [Suspect]
     Indication: MEDICATION ERROR
     Dates: start: 20120607, end: 20120607
  13. SOLIRIS [Suspect]
     Indication: PAROXYSMAL NOCTURNAL HAEMOGLOBINURIA
     Route: 042
     Dates: start: 20110714
  14. VITAMIN B6 [Concomitant]

REACTIONS (7)
  - OEDEMA PERIPHERAL [None]
  - CHRONIC OBSTRUCTIVE PULMONARY DISEASE [None]
  - NIGHT SWEATS [None]
  - CARDIAC FAILURE CONGESTIVE [None]
  - MEDICATION ERROR [None]
  - DYSPNOEA [None]
  - HAEMOGLOBIN DECREASED [None]
